FAERS Safety Report 9409490 (Version 1)
Quarter: 2013Q3

REPORT INFORMATION
  Report Type: Report from Study
  Country: US (occurrence: US)
  Receive Date: 20130719
  Receipt Date: 20130719
  Transmission Date: 20140515
  Serious: Yes (Other)
  Sender: FDA-Public Use
  Company Number: US-ROCHE-1248215

PATIENT
  Sex: 0

DRUGS (3)
  1. BEVACIZUMAB [Suspect]
     Indication: GLIOBLASTOMA MULTIFORME
     Dosage: ON DAY 1 AND 15
     Route: 042
  2. BKM120 [Suspect]
     Indication: GLIOBLASTOMA MULTIFORME
     Route: 065
  3. BKM120 [Suspect]
     Route: 065

REACTIONS (11)
  - Delirium [Unknown]
  - Dyspepsia [Unknown]
  - Nausea [Unknown]
  - Alanine aminotransferase increased [Unknown]
  - Dehydration [Unknown]
  - Proteinuria [Unknown]
  - Rash [Unknown]
  - Thrombocytopenia [Unknown]
  - Stomatitis [Unknown]
  - Ataxia [Unknown]
  - Mental status changes [Unknown]
